FAERS Safety Report 21723794 (Version 1)
Quarter: 2022Q4

REPORT INFORMATION
  Report Type: Spontaneous
  Country: US (occurrence: None)
  Receive Date: 20221213
  Receipt Date: 20221213
  Transmission Date: 20230113
  Serious: Yes (Hospitalization)
  Sender: FDA-Public Use
  Company Number: None

PATIENT
  Age: 30 Year
  Sex: Male
  Weight: 82.5 kg

DRUGS (2)
  1. LAMOTRIGINE [Suspect]
     Active Substance: LAMOTRIGINE
     Indication: Affective disorder
     Dosage: FREQUENCY : DAILY;?
     Route: 048
     Dates: start: 20221122, end: 20221122
  2. vitamin d 5000iu [Concomitant]
     Dates: start: 20221116, end: 20221130

REACTIONS (5)
  - Nuchal rigidity [None]
  - Laryngospasm [None]
  - Musculoskeletal stiffness [None]
  - Heart rate increased [None]
  - Blood pressure increased [None]

NARRATIVE: CASE EVENT DATE: 20221122
